FAERS Safety Report 9060275 (Version 1)
Quarter: 2013Q1

REPORT INFORMATION
  Report Type: Spontaneous
  Country: US (occurrence: None)
  Receive Date: 20130207
  Receipt Date: 20130207
  Transmission Date: 20140127
  Serious: No
  Sender: FDA-Public Use
  Company Number: None

PATIENT
  Age: 75 Year
  Sex: Female
  Weight: 72.58 kg

DRUGS (1)
  1. NITROFURANTOIN 100 MG [Suspect]
     Indication: URINARY TRACT INFECTION
     Dates: start: 20130103, end: 20130108

REACTIONS (2)
  - Pyrexia [None]
  - Chills [None]
